FAERS Safety Report 10609736 (Version 1)
Quarter: 2014Q4

REPORT INFORMATION
  Report Type: Spontaneous
  Country: SE (occurrence: SE)
  Receive Date: 20141126
  Receipt Date: 20141126
  Transmission Date: 20150529
  Serious: Yes (Other)
  Sender: FDA-Public Use
  Company Number: SE-ENDO PHARMACEUTICALS INC.-AVEE20140335

PATIENT
  Age: 63 Year
  Sex: Male

DRUGS (1)
  1. AVEED [Suspect]
     Active Substance: TESTOSTERONE UNDECANOATE
     Indication: KLINEFELTER^S SYNDROME
     Dosage: UNKNOWN
     Route: 065
     Dates: start: 20120416, end: 20141119

REACTIONS (1)
  - Pulmonary oil microembolism [Recovered/Resolved]

NARRATIVE: CASE EVENT DATE: 20141119
